FAERS Safety Report 9175371 (Version 1)
Quarter: 2013Q1

REPORT INFORMATION
  Report Type: Report from Study
  Country: PL (occurrence: PL)
  Receive Date: 20130320
  Receipt Date: 20130320
  Transmission Date: 20140127
  Serious: Yes (Hospitalization)
  Sender: FDA-Public Use
  Company Number: PL-JNJFOC-20110801659

PATIENT
  Age: 51 Year
  Sex: Male
  Weight: 117.2 kg

DRUGS (10)
  1. GOLIMUMAB [Suspect]
     Route: 042
  2. GOLIMUMAB [Suspect]
     Indication: RHEUMATOID ARTHRITIS
     Route: 042
     Dates: start: 20101125
  3. PLACEBO [Suspect]
     Indication: RHEUMATOID ARTHRITIS
     Route: 042
     Dates: start: 20100607
  4. LISINOPRIL [Concomitant]
     Indication: HYPERTENSION
     Route: 048
     Dates: start: 2005
  5. KALIPOZ [Concomitant]
     Indication: NUTRITIONAL SUPPLEMENTATION
     Route: 048
     Dates: start: 2005
  6. FOLIC ACID [Concomitant]
     Indication: PROPHYLAXIS
     Route: 048
     Dates: start: 2005
  7. MILURIT [Concomitant]
     Indication: PROPHYLAXIS
     Route: 048
     Dates: start: 20080605
  8. SIOFOR [Concomitant]
     Indication: DIABETES MELLITUS
     Route: 048
     Dates: start: 2005, end: 201106
  9. GLIBENCLAMIDE [Concomitant]
     Indication: DIABETES MELLITUS
     Route: 048
     Dates: start: 2005, end: 201106
  10. DIURESIN [Concomitant]
     Indication: HYPERTENSION
     Route: 048
     Dates: start: 2005

REACTIONS (1)
  - Pneumonia [Recovered/Resolved]
